FAERS Safety Report 4929805-5 (Version None)
Quarter: 2006Q1

REPORT INFORMATION
  Report Type: 
  Country: None (occurrence: None)
  Receive Date: 20060301
  Receipt Date: 20041029
  Transmission Date: 20060701
  Serious: Yes (Hospitalization, Disabling)
  Sender: FDA-Public Use
  Company Number: DE-MERCK-0410DEU00777

PATIENT
  Age: 36 Year
  Sex: Male
  Weight: 130 kg

DRUGS (16)
  1. VIOXX [Suspect]
     Indication: SCIATICA
     Route: 048
     Dates: start: 20020301, end: 20031201
  2. VIOXX [Suspect]
     Route: 048
     Dates: start: 20040201, end: 20040301
  3. VIOXX [Suspect]
     Route: 048
     Dates: start: 20040601, end: 20041001
  4. VIOXX [Suspect]
     Indication: BONE PAIN
     Route: 048
     Dates: start: 20020301, end: 20031201
  5. VIOXX [Suspect]
     Route: 048
     Dates: start: 20040201, end: 20040301
  6. VIOXX [Suspect]
     Route: 048
     Dates: start: 20040601, end: 20041001
  7. TRAMADOL HYDROCHLORIDE [Concomitant]
     Route: 065
     Dates: start: 20021101, end: 20021101
  8. TRAMADOL HYDROCHLORIDE [Concomitant]
     Route: 065
     Dates: start: 20030501, end: 20030501
  9. DIPYRONE [Concomitant]
     Route: 065
     Dates: start: 20040401, end: 20040401
  10. DIPYRONE [Concomitant]
     Route: 065
     Dates: start: 20040501, end: 20040501
  11. DIPYRONE [Concomitant]
     Route: 065
     Dates: start: 20040101, end: 20040101
  12. CROMOLYN SODIUM [Concomitant]
     Route: 065
     Dates: start: 20030601, end: 20030801
  13. ACETAMINOPHEN [Concomitant]
     Route: 065
     Dates: start: 20030301, end: 20030301
  14. ASPIRIN [Concomitant]
     Route: 065
     Dates: start: 20030801, end: 20030801
  15. ACETYLCYSTEINE [Concomitant]
     Route: 065
     Dates: start: 20030301, end: 20030301
  16. ACETYLCYSTEINE [Concomitant]
     Route: 065
     Dates: start: 20030801, end: 20030801

REACTIONS (10)
  - ASTHENIA [None]
  - CARDIOVASCULAR DISORDER [None]
  - CHEST PAIN [None]
  - DEEP VEIN THROMBOSIS [None]
  - DISTURBANCE IN ATTENTION [None]
  - DIZZINESS [None]
  - INTERVERTEBRAL DISC PROTRUSION [None]
  - MEMORY IMPAIRMENT [None]
  - PULMONARY EMBOLISM [None]
  - SHOULDER PAIN [None]
